FAERS Safety Report 17324729 (Version 1)
Quarter: 2020Q1

REPORT INFORMATION
  Report Type: Spontaneous
  Country: US (occurrence: US)
  Receive Date: 20200124
  Receipt Date: 20200124
  Transmission Date: 20200409
  Serious: No
  Sender: FDA-Public Use
  Company Number: None

PATIENT
  Age: 48 Year
  Sex: Female

DRUGS (3)
  1. HUMIRA [Suspect]
     Active Substance: ADALIMUMAB
     Dosage: ?          OTHER FREQUENCY:EVERY OTHER WEEK;?
     Route: 058
     Dates: start: 20150530
  2. YAZ TAB [Concomitant]
  3. METFORMIN TAB [Concomitant]

REACTIONS (2)
  - Rash [None]
  - Discomfort [None]

NARRATIVE: CASE EVENT DATE: 20191215
